FAERS Safety Report 10094714 (Version 2)
Quarter: 2014Q2

REPORT INFORMATION
  Report Type: Spontaneous
  Country: US (occurrence: US)
  Receive Date: 20140422
  Receipt Date: 20140422
  Transmission Date: 20141212
  Serious: Yes (Death, Other)
  Sender: FDA-Public Use
  Company Number: US-SA-FABR-1003474

PATIENT
  Sex: Female

DRUGS (1)
  1. AGALSIDASE BETA [Suspect]
     Indication: FABRY^S DISEASE
     Dosage: 80 MG, Q2W
     Route: 042
     Dates: start: 201206, end: 20130613

REACTIONS (2)
  - Cerebrovascular accident [Fatal]
  - Disease progression [Unknown]
